FAERS Safety Report 11158934 (Version 2)
Quarter: 2015Q2

REPORT INFORMATION
  Report Type: Spontaneous
  Country: ES (occurrence: ES)
  Receive Date: 20150603
  Receipt Date: 20150617
  Transmission Date: 20150821
  Serious: Yes (Hospitalization)
  Sender: FDA-Public Use
  Company Number: ES-SA-2015SA074339

PATIENT
  Age: 79 Year
  Sex: Female

DRUGS (10)
  1. ARAVA [Suspect]
     Active Substance: LEFLUNOMIDE
     Indication: RHEUMATOID ARTHRITIS
     Dosage: 30 TABLETS
     Route: 048
     Dates: start: 20070702, end: 20090403
  2. MIRTAZAPINE. [Concomitant]
     Active Substance: MIRTAZAPINE
     Indication: DEPRESSION
     Dosage: 0-0-1
     Route: 048
     Dates: start: 20120508
  3. DOLQUINE [Suspect]
     Active Substance: HYDROXYCHLOROQUINE SULFATE
     Indication: RHEUMATOID ARTHRITIS
     Dosage: 1-0-0; DOLQUINE 200 MG FILM-COATED TABLETS, 30 TABLETS.
     Route: 048
     Dates: start: 20090527, end: 20140522
  4. DACORTIN [Concomitant]
     Active Substance: PREDNISONE
     Indication: RHEUMATOID ARTHRITIS
     Dosage: 1-0-0
     Route: 048
     Dates: start: 20090527, end: 20140522
  5. METOTREXATE [Suspect]
     Active Substance: METHOTREXATE SODIUM
     Indication: RHEUMATOID ARTHRITIS
     Dosage: 3-0-3.
     Route: 048
     Dates: start: 20090527, end: 20140522
  6. MICARDIS [Concomitant]
     Active Substance: TELMISARTAN
     Dosage: 1-0-0, STRENGTH 80MG
     Route: 048
  7. HUMIRA [Suspect]
     Active Substance: ADALIMUMAB
     Indication: RHEUMATOID ARTHRITIS
     Dosage: 1 INYECCION SC CADA 15 DIAS, 2 PRE-FILLED SYRINGES.?FREQUENCY: TWICE A MONTH.
     Route: 058
     Dates: start: 2007, end: 20120508
  8. ARAVA [Suspect]
     Active Substance: LEFLUNOMIDE
     Indication: RHEUMATOID ARTHRITIS
     Dosage: 30 TABLETS
     Route: 048
     Dates: start: 20060206, end: 20070701
  9. IDEOS [Concomitant]
     Active Substance: CALCIUM CARBONATE\CHOLECALCIFEROL
     Indication: OSTEOPOROSIS
     Dosage: 1-0-1
     Route: 048
     Dates: start: 20090527
  10. OMEPRAZOLE. [Concomitant]
     Active Substance: OMEPRAZOLE
     Indication: PROPHYLAXIS AGAINST GASTROINTESTINAL ULCER
     Dosage: 1 CP.
     Route: 048
     Dates: start: 20120508

REACTIONS (1)
  - Invasive ductal breast carcinoma [Recovering/Resolving]

NARRATIVE: CASE EVENT DATE: 20120629
